FAERS Safety Report 5766051-X (Version None)
Quarter: 2008Q2

REPORT INFORMATION
  Report Type: 
  Country: None (occurrence: None)
  Receive Date: 20080611
  Receipt Date: 20080603
  Transmission Date: 20081010
  Serious: Yes (Other)
  Sender: FDA-Public Use
  Company Number: US-AVENTIS-200813412US

PATIENT
  Sex: Female
  Weight: 96.16 kg

DRUGS (5)
  1. LANTUS [Suspect]
     Indication: TYPE 1 DIABETES MELLITUS
     Dosage: DOSE: 10 - 40 UNITS
     Route: 058
     Dates: start: 20080201, end: 20080529
  2. NOVOLOG [Concomitant]
     Dosage: FREQUENCY: BEFORE MEALS
     Route: 058
  3. LEXAPRO [Concomitant]
     Dosage: DOSE: UNK
  4. ABILIFY [Concomitant]
     Dosage: DOSE: UNK
  5. SEROQUEL [Concomitant]
     Dosage: DOSE: UNK
     Dates: end: 20080201

REACTIONS (3)
  - BLOOD GLUCOSE INCREASED [None]
  - HYPOGLYCAEMIA [None]
  - WEIGHT DECREASED [None]
